FAERS Safety Report 8063072-1 (Version None)
Quarter: 2012Q1

REPORT INFORMATION
  Report Type: 
  Country: None (occurrence: None)
  Receive Date: 20120123
  Receipt Date: 20120113
  Transmission Date: 20120608
  Serious: Yes (Other)
  Sender: FDA-Public Use
  Company Number: US-ROCHE-791232

PATIENT
  Sex: Male
  Weight: 56.75 kg

DRUGS (2)
  1. ACCUTANE [Suspect]
     Indication: ACNE
     Route: 065
     Dates: start: 19960101, end: 19970101
  2. ACCUTANE [Suspect]
     Dates: start: 19970401, end: 19970901

REACTIONS (7)
  - INFLAMMATORY BOWEL DISEASE [None]
  - DEPRESSION [None]
  - CHAPPED LIPS [None]
  - EMOTIONAL DISTRESS [None]
  - SUICIDAL IDEATION [None]
  - COLITIS ULCERATIVE [None]
  - SMALL INTESTINAL OBSTRUCTION [None]
